FAERS Safety Report 5281667-5 (Version None)
Quarter: 2007Q1

REPORT INFORMATION
  Report Type: 
  Country: None (occurrence: None)
  Receive Date: 20070326
  Receipt Date: 20070315
  Transmission Date: 20070707
  Serious: Yes (Hospitalization)
  Sender: FDA-Public Use
  Company Number: OMPQ-NO-0703S-0145

PATIENT
  Age: 8 Year
  Sex: Male

DRUGS (1)
  1. OMNIPAQUE 140 [Suspect]
     Indication: CORONARY ARTERY DISEASE
     Dosage: SINGLE DOSE, I.V.
     Route: 042
     Dates: start: 20070301, end: 20070301

REACTIONS (2)
  - HEPATITIS A [None]
  - HEPATITIS INFECTIOUS [None]
